FAERS Safety Report 20517141 (Version 1)
Quarter: 2022Q1

REPORT INFORMATION
  Report Type: Report from Study
  Country: DE (occurrence: DE)
  Receive Date: 20220225
  Receipt Date: 20220225
  Transmission Date: 20220423
  Serious: Yes (Death, Other)
  Sender: FDA-Public Use
  Company Number: DE-ALS-000532

PATIENT
  Age: 56 Year
  Sex: Male

DRUGS (1)
  1. METFORMIN [Suspect]
     Active Substance: METFORMIN HYDROCHLORIDE
     Indication: Type 2 diabetes mellitus
     Route: 065

REACTIONS (12)
  - Lactic acidosis [Unknown]
  - Diarrhoea [Unknown]
  - Vomiting [Unknown]
  - Chest pain [Unknown]
  - Cyanosis [Unknown]
  - Circulatory collapse [Unknown]
  - Cardiac arrest [Unknown]
  - Resuscitation [Unknown]
  - Mechanical ventilation [Unknown]
  - Continuous haemodiafiltration [Unknown]
  - Condition aggravated [Fatal]
  - Drug ineffective [Unknown]
